FAERS Safety Report 18721986 (Version 1)
Quarter: 2021Q1

REPORT INFORMATION
  Report Type: Spontaneous
  Country: IT (occurrence: IT)
  Receive Date: 20210111
  Receipt Date: 20210111
  Transmission Date: 20210419
  Serious: Yes (Life-Threatening, Other)
  Sender: FDA-Public Use
  Company Number: IT-AUROBINDO-AUR-APL-2021-000454

PATIENT
  Age: 39 Year
  Sex: Female
  Weight: 65 kg

DRUGS (3)
  1. RISPERIDONE FILM?COATED TABLETS [Suspect]
     Active Substance: RISPERIDONE
     Indication: PRODUCT USED FOR UNKNOWN INDICATION
     Dosage: 50 MILLIGRAM, TOTAL
     Route: 065
     Dates: start: 20201227, end: 20201227
  2. DELORAZEPAM ORAL DROPS SOLUTION [Suspect]
     Active Substance: DELORAZEPAM
     Indication: PRODUCT USED FOR UNKNOWN INDICATION
     Dosage: 20 MILLIGRAM, TOTAL
     Route: 048
     Dates: start: 20201227, end: 20201227
  3. OLANZAPINE. [Suspect]
     Active Substance: OLANZAPINE
     Indication: PRODUCT USED FOR UNKNOWN INDICATION
     Dosage: 75 MILLIGRAM, TOTAL
     Route: 048
     Dates: start: 20201227, end: 20201227

REACTIONS (5)
  - Suicide attempt [Recovering/Resolving]
  - Electrocardiogram QT prolonged [Recovering/Resolving]
  - Sopor [Recovering/Resolving]
  - Intentional overdose [Recovering/Resolving]
  - Tachycardia [Recovering/Resolving]

NARRATIVE: CASE EVENT DATE: 20201227
